FAERS Safety Report 24992499 (Version 1)
Quarter: 2025Q1

REPORT INFORMATION
  Report Type: Spontaneous
  Country: US (occurrence: US)
  Receive Date: 20250220
  Receipt Date: 20250220
  Transmission Date: 20250408
  Serious: Yes (Other)
  Sender: ABBVIE
  Company Number: US-ABBVIE-6133636

PATIENT
  Sex: Female

DRUGS (1)
  1. SKYRIZI [Suspect]
     Active Substance: RISANKIZUMAB-RZAA
     Indication: Crohn^s disease
     Route: 058

REACTIONS (6)
  - Ileectomy [Unknown]
  - Fistula of small intestine [Unknown]
  - Abscess [Not Recovered/Not Resolved]
  - Large intestinal ulcer [Unknown]
  - Gastrointestinal inflammation [Unknown]
  - Ileal ulcer [Unknown]
